FAERS Safety Report 20628334 (Version 5)
Quarter: 2023Q2

REPORT INFORMATION
  Report Type: Report from Study
  Country: US (occurrence: US)
  Receive Date: 20220323
  Receipt Date: 20230524
  Transmission Date: 20230721
  Serious: Yes (Disabling)
  Sender: FDA-Public Use
  Company Number: US-ARGENX-2022-ARGX-US000430

PATIENT
  Sex: Male

DRUGS (1)
  1. VYVGART [Suspect]
     Active Substance: EFGARTIGIMOD ALFA-FCAB
     Indication: Myasthenia gravis
     Dosage: 980 MG
     Dates: start: 20220310

REACTIONS (7)
  - Immobile [Unknown]
  - Hospice care [Unknown]
  - Drug ineffective [Not Recovered/Not Resolved]
  - Fatigue [Unknown]
  - Condition aggravated [Unknown]
  - Asthenia [Unknown]
  - Cough [Unknown]
